FAERS Safety Report 9200409 (Version 4)
Quarter: 2014Q3

REPORT INFORMATION
  Report Type: Spontaneous
  Country: JP (occurrence: JP)
  Receive Date: 20130329
  Receipt Date: 20140703
  Transmission Date: 20150326
  Serious: Yes (Hospitalization, Other)
  Sender: FDA-Public Use
  Company Number: JP-OTSUKA-JP-2013-10715

PATIENT
  Age: 79 Year
  Sex: Female

DRUGS (18)
  1. SAMSCA [Suspect]
     Active Substance: TOLVAPTAN
     Indication: CARDIAC FAILURE
     Dosage: 7.5 MG MILLIGRAM(S), QD
     Route: 048
     Dates: start: 20130129, end: 20130213
  2. TAKEPRON [Concomitant]
     Active Substance: LANSOPRAZOLE
     Dosage: 15 MG MILLIGRAM(S), QD
     Route: 048
  3. GOREI-SAN [Suspect]
     Active Substance: HERBALS
     Indication: PRODUCT USED FOR UNKNOWN INDICATION
     Dosage: 1 DF DOSAGE FORM, TID
     Route: 048
     Dates: end: 20130412
  4. ITOROL [Concomitant]
     Active Substance: ISOSORBIDE MONONITRATE
     Dosage: 20 MG MILLIGRAM(S), BID
     Route: 048
     Dates: end: 20130412
  5. NORVASC [Concomitant]
     Active Substance: AMLODIPINE BESYLATE
     Indication: HYPERTENSION
     Dosage: 5 MG MILLIGRAM(S), QD
     Route: 048
     Dates: end: 20130412
  6. SIGMART [Concomitant]
     Active Substance: NICORANDIL
     Dosage: 5 MG MILLIGRAM(S), BID
     Route: 048
     Dates: end: 20130412
  7. HUSCODE [Concomitant]
     Active Substance: CHLORPHENIRAMINE MALEAT\DIHYDROCODEINE PHOSPHATE\METHYLEPHEDRINE HYDROCHLORIDE, DL-
     Dosage: UNK UNK, QD
     Route: 048
  8. ALDACTONE [Concomitant]
     Active Substance: SPIRONOLACTONE
     Indication: CARDIAC FAILURE CHRONIC
     Dosage: 50 MG MILLIGRAM(S), QD
     Route: 048
     Dates: end: 20130412
  9. FUROSEMIDE. [Concomitant]
     Active Substance: FUROSEMIDE
     Dosage: 20 MG MILLIGRAM(S), QD
     Route: 048
     Dates: end: 20130412
  10. PLAVIX [Suspect]
     Active Substance: CLOPIDOGREL BISULFATE
     Indication: CORONARY ARTERIAL STENT INSERTION
     Dosage: 32.5 MG MILLIGRAM(S), QD
     Route: 048
  11. LUPRAC [Concomitant]
     Active Substance: TORSEMIDE
     Indication: CARDIAC FAILURE CHRONIC
     Dosage: 8 MG MILLIGRAM(S), QD
     Route: 048
     Dates: end: 20130412
  12. BAYASPIRIN [Concomitant]
     Active Substance: ASPIRIN
     Dosage: 100 MG MILLIGRAM(S), QD
     Route: 048
     Dates: end: 20130412
  13. VOGLIBOSE [Concomitant]
     Active Substance: VOGLIBOSE
     Dosage: 0.2 MG MILLIGRAM(S), TID
     Route: 048
     Dates: end: 20130412
  14. ARTIST [Concomitant]
     Active Substance: CARVEDILOL
     Dosage: 1.25 MG MILLIGRAM(S), BID
     Route: 048
     Dates: end: 20130412
  15. ALLOPURINOL. [Concomitant]
     Active Substance: ALLOPURINOL
     Dosage: UNK UNK, QD
     Route: 048
  16. FUROSEMIDE. [Concomitant]
     Active Substance: FUROSEMIDE
     Dosage: 60 MG MILLIGRAM(S), QD
     Route: 048
     Dates: end: 20130412
  17. LIPITOR [Concomitant]
     Active Substance: ATORVASTATIN CALCIUM
     Indication: HYPERLIPIDAEMIA
     Dosage: 10 MG MILLIGRAM(S), QD
     Route: 048
     Dates: end: 20130412
  18. SAMSCA [Suspect]
     Active Substance: TOLVAPTAN
     Indication: HYPONATRAEMIA
     Dosage: 15 MG MILLIGRAM(S), QD
     Route: 048
     Dates: start: 20130214

REACTIONS (5)
  - Interstitial lung disease [Recovering/Resolving]
  - Cholelithiasis [Unknown]
  - Blood urea increased [Unknown]
  - Splenomegaly [Unknown]
  - Anaemia [Recovering/Resolving]

NARRATIVE: CASE EVENT DATE: 20130207
